FAERS Safety Report 10025667 (Version 1)
Quarter: 2014Q1

REPORT INFORMATION
  Report Type: Spontaneous
  Country: ES (occurrence: ES)
  Receive Date: 20140320
  Receipt Date: 20140320
  Transmission Date: 20141002
  Serious: Yes (Hospitalization, Other)
  Sender: FDA-Public Use
  Company Number: ES-PFIZER INC-2014078627

PATIENT
  Age: 83 Year
  Sex: Female

DRUGS (4)
  1. BESITRAN [Suspect]
     Indication: DEPRESSION
     Dosage: 50 MG, 1X/DAY
     Route: 048
     Dates: start: 20130430
  2. XARELTO [Suspect]
     Indication: ATRIAL FIBRILLATION
     Dosage: 20 MG, 1X/DAY
     Route: 048
     Dates: start: 20130430, end: 20130516
  3. DIGOXIN [Concomitant]
     Indication: ATRIAL FIBRILLATION
     Dosage: 0.25 MG, 1X/DAY
     Route: 048
     Dates: start: 20120423
  4. OMEPRAZOLE [Concomitant]
     Indication: PROPHYLAXIS AGAINST GASTROINTESTINAL ULCER
     Dosage: 20 MG, 1X/DAY
     Route: 048
     Dates: start: 20130408

REACTIONS (7)
  - Anaemia [Recovering/Resolving]
  - Right ventricular failure [Unknown]
  - Spinal fracture [Unknown]
  - Diverticulum [Unknown]
  - Diverticulitis [Unknown]
  - Gastritis [Unknown]
  - Arthropathy [Unknown]
